FAERS Safety Report 10674131 (Version 2)
Quarter: 2014Q4

REPORT INFORMATION
  Report Type: Spontaneous
  Country: BR (occurrence: BR)
  Receive Date: 20141224
  Receipt Date: 20141224
  Transmission Date: 20150529
  Serious: Yes (Other)
  Sender: FDA-Public Use
  Company Number: BR-SA-2014SA053724

PATIENT
  Age: 24 Year
  Sex: Female
  Weight: 68.4 kg

DRUGS (4)
  1. IRON [Concomitant]
     Active Substance: IRON
  2. CLEXANE [Suspect]
     Active Substance: ENOXAPARIN SODIUM
     Indication: HYPERCOAGULATION
     Dosage: STRENGTH: 40 MG SYRINGE
     Route: 058
     Dates: start: 20140403
  3. VITAMIN D [Concomitant]
     Active Substance: CHOLECALCIFEROL
  4. OMEGA 3 [Concomitant]
     Active Substance: OMEGA-3 FATTY ACIDS

REACTIONS (5)
  - Premature separation of placenta [Unknown]
  - Exposure during pregnancy [Unknown]
  - Injection site bruising [Recovered/Resolved]
  - Injection site pain [Recovered/Resolved]
  - Hypersensitivity [Recovered/Resolved]

NARRATIVE: CASE EVENT DATE: 2014
